FAERS Safety Report 4955860-2 (Version None)
Quarter: 2006Q1

REPORT INFORMATION
  Report Type: 
  Country: None (occurrence: None)
  Receive Date: 20060327
  Receipt Date: 20060327
  Transmission Date: 20060701
  Serious: Yes (Hospitalization)
  Sender: FDA-Public Use
  Company Number: None

PATIENT
  Sex: Female
  Weight: 50.3493 kg

DRUGS (4)
  1. ARIMIDEX [Suspect]
     Indication: BREAST CANCER
     Dosage: 1 MG DAILY PO
     Route: 048
     Dates: start: 20060228, end: 20060313
  2. CELEBREX [Suspect]
     Indication: BREAST CANCER
     Dosage: 200 MG DAILY PO
     Route: 048
     Dates: start: 20060228, end: 20060313
  3. MULTI-VITAMIN [Concomitant]
  4. ENDOCET [Concomitant]

REACTIONS (1)
  - CHEST PAIN [None]
